FAERS Safety Report 8116453-1 (Version None)
Quarter: 2012Q1

REPORT INFORMATION
  Report Type: 
  Country: None (occurrence: None)
  Receive Date: 20120206
  Receipt Date: 20120130
  Transmission Date: 20120608
  Serious: Yes (Other)
  Sender: FDA-Public Use
  Company Number: US-US-EMD SERONO, INC.-7110343

PATIENT
  Sex: Female
  Weight: 79 kg

DRUGS (1)
  1. REBIF [Suspect]
     Indication: MULTIPLE SCLEROSIS
     Route: 058
     Dates: start: 20060704, end: 20110101

REACTIONS (5)
  - FIBROMYALGIA [None]
  - SLEEP DISORDER [None]
  - DIABETES MELLITUS [None]
  - BLOOD CHOLESTEROL ABNORMAL [None]
  - RHEUMATOID ARTHRITIS [None]
